FAERS Safety Report 10926156 (Version 1)
Quarter: 2015Q1

REPORT INFORMATION
  Report Type: Spontaneous
  Country: US (occurrence: None)
  Receive Date: 20150316
  Receipt Date: 20150316
  Transmission Date: 20150721
  Serious: Yes (Other)
  Sender: FDA-Public Use
  Company Number: None

PATIENT
  Age: 48 Year
  Sex: Male

DRUGS (21)
  1. JANUMET [Concomitant]
     Active Substance: METFORMIN HYDROCHLORIDE\SITAGLIPTIN PHOSPHATE
  2. LANSOPRAZOLE. [Concomitant]
     Active Substance: LANSOPRAZOLE
  3. METOPROL TAR [Concomitant]
  4. NATURE MADE BIOTIN [Concomitant]
  5. WARFARIN [Concomitant]
     Active Substance: WARFARIN
  6. MELATONIN [Concomitant]
     Active Substance: MELATONIN
  7. MONTELKAST [Concomitant]
  8. CYCLOBENZAPR [Concomitant]
  9. FIBER [Concomitant]
     Active Substance: PSYLLIUM HUSK
  10. METOPROLOL TARTRATE. [Suspect]
     Active Substance: METOPROLOL TARTRATE
     Indication: SYNCOPE
     Route: 048
  11. ONDANSTETRON [Concomitant]
  12. BRIMONIDINE TARTRATE. [Concomitant]
     Active Substance: BRIMONIDINE TARTRATE
  13. CRESTOR [Concomitant]
     Active Substance: ROSUVASTATIN CALCIUM
  14. ANDROGEL [Concomitant]
     Active Substance: TESTOSTERONE
  15. MULTIVITES [Concomitant]
  16. SERTRALINE HCL [Concomitant]
     Active Substance: SERTRALINE HYDROCHLORIDE
  17. VITAFUSION CALCIUM [Concomitant]
  18. LANTANOPROST [Concomitant]
  19. AMPHETAMINE [Concomitant]
     Active Substance: AMPHETAMINE
  20. TRAMADOL [Concomitant]
     Active Substance: TRAMADOL
  21. ACYCLOVIR. [Concomitant]
     Active Substance: ACYCLOVIR

REACTIONS (2)
  - Product quality issue [None]
  - Drug ineffective [None]

NARRATIVE: CASE EVENT DATE: 20150311
